FAERS Safety Report 26082989 (Version 1)
Quarter: 2025Q4

REPORT INFORMATION
  Report Type: Spontaneous
  Country: RU (occurrence: RU)
  Receive Date: 20251124
  Receipt Date: 20251124
  Transmission Date: 20260118
  Serious: Yes (Death, Other)
  Sender: BAYER HEALTHCARE PHARMACEUTICALS INC.
  Company Number: RU-BAYER-2025A153180

PATIENT
  Age: 35 Year
  Sex: Male

DRUGS (1)
  1. ULTRAVIST [Suspect]
     Active Substance: IOPROMIDE
     Indication: Computerised tomogram abdomen
     Dosage: 100 ML, ONCE
     Route: 042
     Dates: start: 20251117, end: 20251117

REACTIONS (9)
  - Anaphylactic shock [Fatal]
  - Asthma [Fatal]
  - Obstructive airways disorder [None]
  - Loss of consciousness [None]
  - Agitation [None]
  - Laryngospasm [None]
  - Cyanosis [None]
  - Blood pressure decreased [None]
  - Suspected product quality issue [None]

NARRATIVE: CASE EVENT DATE: 20251117
